FAERS Safety Report 8784760 (Version 3)
Quarter: 2012Q4

REPORT INFORMATION
  Report Type: 
  Country: JP (occurrence: JP)
  Receive Date: 20120914
  Receipt Date: 20120928
  Transmission Date: 20130627
  Serious: Yes (Hospitalization)
  Sender: FDA-Public Use
  Company Number: JP-009507513-1209JPN005750

PATIENT
  Age: 54 Year
  Sex: Female

DRUGS (9)
  1. GASTER [Suspect]
     Indication: GASTRITIS
     Dosage: 10 mg, qd
     Route: 048
     Dates: start: 20100916, end: 20110217
  2. MYSLEE [Suspect]
     Indication: INSOMNIA
     Dosage: 10 mg, qd
     Route: 048
     Dates: start: 20110113, end: 20110217
  3. DEPAS [Suspect]
     Indication: PSYCHOSOMATIC DISEASE
     Dosage: 0.5 mg, qd
     Route: 048
     Dates: start: 20070710, end: 20110217
  4. DEPROMEL [Suspect]
     Indication: DEPRESSION
     Dosage: 25 mg, qd
     Route: 048
     Dates: start: 20070710, end: 20070910
  5. DEPROMEL [Suspect]
     Dosage: 50 mg, qd
     Route: 048
     Dates: start: 20070910, end: 20110217
  6. GASMOTIN [Concomitant]
     Indication: GASTRITIS
     Dosage: UNK
     Dates: start: 20100916, end: 20110210
  7. MAGNESIUM OXIDE [Concomitant]
     Indication: CONSTIPATION
     Dosage: UNK
     Dates: start: 20101014, end: 20110210
  8. CALONAL [Concomitant]
     Indication: HEADACHE
     Dosage: UNK
     Route: 048
     Dates: start: 20110113
  9. ALLEGRA [Concomitant]
     Indication: RHINITIS ALLERGIC
     Dosage: UNK
     Route: 048
     Dates: start: 20110210

REACTIONS (1)
  - Hepatic function abnormal [Recovering/Resolving]
